FAERS Safety Report 11226354 (Version 1)
Quarter: 2015Q2

REPORT INFORMATION
  Report Type: Spontaneous
  Country: US (occurrence: US)
  Receive Date: 20150629
  Receipt Date: 20150629
  Transmission Date: 20150821
  Serious: Yes (Other)
  Sender: FDA-Public Use
  Company Number: US-ABBVIE-15P-163-1415595-00

PATIENT

DRUGS (1)
  1. SYNTHROID [Suspect]
     Active Substance: LEVOTHYROXINE SODIUM
     Indication: PRODUCT USED FOR UNKNOWN INDICATION
     Route: 065

REACTIONS (6)
  - Energy increased [Unknown]
  - Drug dose omission [Unknown]
  - Oppositional defiant disorder [Unknown]
  - Therapeutic response unexpected [Unknown]
  - Autoimmune thyroiditis [Unknown]
  - Myxoedema coma [Unknown]
